FAERS Safety Report 7383261-9 (Version None)
Quarter: 2011Q1

REPORT INFORMATION
  Report Type: 
  Country: None (occurrence: None)
  Receive Date: 20110330
  Receipt Date: 20110325
  Transmission Date: 20110831
  Serious: Yes (Death)
  Sender: FDA-Public Use
  Company Number: PHHY2011US19792

PATIENT
  Sex: Female

DRUGS (6)
  1. ALBUTEROL [Concomitant]
     Indication: ASTHMA
     Dosage: 2.5 MG, UNK
  2. NITROFURANTOIN [Concomitant]
     Indication: URINARY TRACT INFECTION
     Dosage: 50 MG, UNK
     Route: 048
  3. RAZADYNE [Concomitant]
     Indication: DEMENTIA
     Dosage: 12 MG, BID
  4. EXJADE [Suspect]
     Indication: NEOPLASM
     Dosage: 1000 MG, QD
     Route: 048
  5. SPIRIVA [Concomitant]
     Indication: ASTHMA
     Dosage: 18 MG, UNK
  6. SINGULAIR [Concomitant]
     Indication: HYPERSENSITIVITY
     Dosage: 10 MG, UNK

REACTIONS (1)
  - DEATH [None]
